FAERS Safety Report 7191196-X (Version None)
Quarter: 2010Q4

REPORT INFORMATION
  Report Type: 
  Country: None (occurrence: None)
  Receive Date: 20101221
  Receipt Date: 20101221
  Transmission Date: 20110411
  Serious: Yes (Hospitalization, Other)
  Sender: FDA-Public Use
  Company Number: None

PATIENT
  Sex: Male
  Weight: 99.7913 kg

DRUGS (3)
  1. VYTORIN [Suspect]
     Indication: BLOOD CHOLESTEROL INCREASED
     Dates: start: 20070501, end: 20080201
  2. SIMVASTATIN [Suspect]
     Dates: start: 20090101
  3. CRESTOR [Suspect]
     Dates: start: 20100601

REACTIONS (4)
  - DEMENTIA [None]
  - GALLBLADDER OEDEMA [None]
  - MENTAL IMPAIRMENT [None]
  - URINARY TRACT INFECTION [None]
